FAERS Safety Report 7049081-X (Version None)
Quarter: 2010Q4

REPORT INFORMATION
  Report Type: 
  Country: None (occurrence: None)
  Receive Date: 20101018
  Receipt Date: 20101007
  Transmission Date: 20110411
  Serious: Yes (Hospitalization)
  Sender: FDA-Public Use
  Company Number: CA-JNJFOC-20101002744

PATIENT
  Sex: Female
  Weight: 64.8 kg

DRUGS (8)
  1. REMICADE [Suspect]
     Indication: RHEUMATOID ARTHRITIS
     Route: 042
  2. REMICADE [Suspect]
     Route: 042
  3. SYNTHROID [Concomitant]
     Route: 065
  4. PARIET [Concomitant]
     Route: 065
  5. WELLBUTRIN [Concomitant]
     Route: 065
  6. METHOTREXATE [Concomitant]
     Route: 065
  7. PREDNISONE [Concomitant]
     Route: 065
  8. FOLIC ACID [Concomitant]
     Route: 065

REACTIONS (1)
  - GINGIVAL OPERATION [None]
